FAERS Safety Report 12055185 (Version 1)
Quarter: 2016Q1

REPORT INFORMATION
  Report Type: Spontaneous
  Country: FR (occurrence: FR)
  Receive Date: 20160209
  Receipt Date: 20160209
  Transmission Date: 20160526
  Serious: Yes (Other)
  Sender: FDA-Public Use
  Company Number: FR-CONCORDIA PHARMACEUTICALS INC.-CO-PL-FR-2016-039

PATIENT
  Age: 75 Year
  Sex: Female

DRUGS (4)
  1. PLAQUENIL [Suspect]
     Active Substance: HYDROXYCHLOROQUINE SULFATE
     Indication: PRODUCT USED FOR UNKNOWN INDICATION
     Route: 048
     Dates: start: 1997, end: 20160120
  2. LASILIX [Concomitant]
     Active Substance: FUROSEMIDE
  3. FUROSEMIDE. [Concomitant]
     Active Substance: FUROSEMIDE
  4. DESLORATADINE. [Concomitant]
     Active Substance: DESLORATADINE

REACTIONS (9)
  - Keratitis [None]
  - Tinnitus [None]
  - Chest pain [None]
  - Corneal lesion [None]
  - Nausea [None]
  - Pruritus [None]
  - Alopecia [None]
  - Abdominal pain [None]
  - Cataract [None]

NARRATIVE: CASE EVENT DATE: 2008
